FAERS Safety Report 4290970-7 (Version None)
Quarter: 2004Q1

REPORT INFORMATION
  Report Type: 
  Country: None (occurrence: None)
  Receive Date: 20040209
  Receipt Date: 20040126
  Transmission Date: 20041129
  Serious: Yes (Other)
  Sender: FDA-Public Use
  Company Number: 200410660US

PATIENT
  Age: 86 Year
  Sex: Female

DRUGS (9)
  1. ALLEGRA-D [Suspect]
     Dosage: 60/120 MG ONCE PO
     Route: 048
     Dates: start: 20040119, end: 20040119
  2. MOXIFLOXACIN HYDROCHLORIDE (AVELOX) [Suspect]
     Indication: BRONCHITIS
     Dosage: 400 MG ONCE PO
     Route: 048
     Dates: start: 20040119, end: 20040119
  3. MOXIFLOXACIN HYDROCHLORIDE (AVELOX) [Suspect]
     Indication: COUGH
     Dosage: 400 MG ONCE PO
     Route: 048
     Dates: start: 20040119, end: 20040119
  4. MOXIFLOXACIN HYDROCHLORIDE (AVELOX) [Suspect]
     Indication: RESPIRATORY TRACT CONGESTION
     Dosage: 400 MG ONCE PO
     Route: 048
     Dates: start: 20040119, end: 20040119
  5. GUAIFENESIN [Suspect]
     Dosage: ONCE
     Dates: start: 20040119, end: 20040119
  6. ACETYLSALICYLIC ACID,MAGNESIUM HYDROXIDE,ALUMINUM HYDROXIDE(ASCRIPTIN) [Concomitant]
  7. ... [Concomitant]
  8. ... [Concomitant]
  9. FLUVASTATIN SODIUM [Concomitant]

REACTIONS (5)
  - BALANCE DISORDER [None]
  - DIZZINESS [None]
  - GAIT DISTURBANCE [None]
  - HYPOTENSION [None]
  - LOSS OF CONSCIOUSNESS [None]
